FAERS Safety Report 9375870 (Version 1)
Quarter: 2013Q2

REPORT INFORMATION
  Report Type: Spontaneous
  Country: US (occurrence: US)
  Receive Date: 20130628
  Receipt Date: 20130628
  Transmission Date: 20140414
  Serious: No
  Sender: FDA-Public Use
  Company Number: US-ASTRAZENECA-2013SE40497

PATIENT
  Age: 67 Year
  Sex: Female

DRUGS (8)
  1. SYMBICORT [Suspect]
     Route: 055
  2. SYMBICORT [Suspect]
     Route: 055
  3. NEXIUM [Suspect]
     Route: 048
  4. NEXIUM [Suspect]
     Route: 048
  5. CRESTOR [Suspect]
     Route: 048
  6. CRESTOR [Suspect]
     Route: 048
  7. OMEPRAZOLE [Suspect]
     Route: 048
  8. OMEPRAZOLE [Suspect]
     Route: 048

REACTIONS (1)
  - Drug intolerance [Unknown]
